FAERS Safety Report 19100416 (Version 1)
Quarter: 2021Q2

REPORT INFORMATION
  Report Type: Spontaneous
  Country: US (occurrence: US)
  Receive Date: 20210407
  Receipt Date: 20210407
  Transmission Date: 20210717
  Serious: No
  Sender: FDA-Public Use
  Company Number: US-SA-2021SA113220

PATIENT
  Sex: Female

DRUGS (1)
  1. DUPIXENT [Suspect]
     Active Substance: DUPILUMAB
     Dates: start: 202102

REACTIONS (2)
  - Condition aggravated [Unknown]
  - Blepharitis [Unknown]

NARRATIVE: CASE EVENT DATE: 2021
